FAERS Safety Report 13892370 (Version 1)
Quarter: 2017Q3

REPORT INFORMATION
  Report Type: Spontaneous
  Country: US (occurrence: US)
  Receive Date: 20170822
  Receipt Date: 20170822
  Transmission Date: 20171127
  Serious: No
  Sender: FDA-Public Use
  Company Number: US-ROCHE-741696

PATIENT
  Age: 23 Year
  Sex: Female

DRUGS (17)
  1. MECLIZINE [Concomitant]
     Active Substance: MECLIZINE HYDROCHLORIDE
     Dosage: FREQUENCY: EVERY 4-6 HOURS
     Route: 048
  2. SEASONALE [Concomitant]
     Active Substance: ETHINYL ESTRADIOL\LEVONORGESTREL
     Route: 048
  3. TYLENOL EXTRA STRENGTH [Concomitant]
     Active Substance: ACETAMINOPHEN
     Route: 048
  4. LORAZEPAM. [Concomitant]
     Active Substance: LORAZEPAM
     Dosage: FREQUENCY: EVERY NIGHT
     Route: 048
  5. MORPHINE SR [Concomitant]
     Active Substance: MORPHINE
     Route: 048
  6. ZOFRAN [Concomitant]
     Active Substance: ONDANSETRON HYDROCHLORIDE
     Dosage: FREQUENCY: EVERY 6-8 HOURS
     Route: 048
  7. EFFEXOR [Concomitant]
     Active Substance: VENLAFAXINE HYDROCHLORIDE
     Route: 048
  8. ACTEMRA [Suspect]
     Active Substance: TOCILIZUMAB
     Indication: RHEUMATOID ARTHRITIS
     Dosage: FORM: INFUSION
     Route: 042
     Dates: start: 20101001, end: 201010
  9. CARDIZEM [Concomitant]
     Active Substance: DILTIAZEM HYDROCHLORIDE
     Route: 048
  10. MORPHINE [Concomitant]
     Active Substance: MORPHINE
     Dosage: DRUG REPORTED AS MORPHINE 30
     Route: 048
  11. BENADRYL [Concomitant]
     Active Substance: DIPHENHYDRAMINE HYDROCHLORIDE
     Route: 048
  12. VITAMIN D [Concomitant]
     Active Substance: CHOLECALCIFEROL
     Dosage: DOSE: 50000 UNITS, 1 TABLET TWICE WEEKLY
     Route: 065
  13. METHOCARBAMOL. [Concomitant]
     Active Substance: METHOCARBAMOL
     Route: 048
  14. FOLIC ACID. [Concomitant]
     Active Substance: FOLIC ACID
     Route: 048
  15. LASIX [Concomitant]
     Active Substance: FUROSEMIDE
     Route: 048
  16. LORTAB [Concomitant]
     Active Substance: ACETAMINOPHEN\HYDROCODONE BITARTRATE
     Dosage: DOSE: 0.5-1 TABLET DAILY
     Route: 048
  17. RELPAX [Concomitant]
     Active Substance: ELETRIPTAN HYDROBROMIDE
     Route: 065

REACTIONS (1)
  - Abdominal pain [Unknown]

NARRATIVE: CASE EVENT DATE: 20101005
